FAERS Safety Report 19516662 (Version 1)
Quarter: 2021Q3

REPORT INFORMATION
  Report Type: Report from Study
  Country: US (occurrence: US)
  Receive Date: 20210709
  Receipt Date: 20210709
  Transmission Date: 20211014
  Serious: Yes (Hospitalization)
  Sender: FDA-Public Use
  Company Number: US-BAXTER-2021BAX019705

PATIENT
  Age: 57 Year
  Sex: Male
  Weight: 96.1 kg

DRUGS (34)
  1. ACYCLOVIR. [Concomitant]
     Active Substance: ACYCLOVIR
     Indication: ANTIBIOTIC THERAPY
  2. ALBUTEROL. [Concomitant]
     Active Substance: ALBUTEROL
     Dosage: ROUTE: INHALATION
     Route: 050
     Dates: start: 20210225, end: 20210305
  3. LEVOFLOXACIN. [Concomitant]
     Active Substance: LEVOFLOXACIN
     Indication: PRODUCT USED FOR UNKNOWN INDICATION
     Dosage: DOSAGE FORM: TABLETS
     Route: 048
     Dates: start: 20210223
  4. DIPHENHYDRAMINE. [Concomitant]
     Active Substance: DIPHENHYDRAMINE
     Indication: PREMEDICATION
     Route: 048
     Dates: start: 20210302, end: 20210302
  5. DIPHENHYDRAMINE. [Concomitant]
     Active Substance: DIPHENHYDRAMINE
     Route: 048
     Dates: start: 20210309, end: 20210309
  6. DEXTROSE. [Concomitant]
     Active Substance: DEXTROSE
     Indication: PRODUCT USED FOR UNKNOWN INDICATION
     Route: 042
     Dates: start: 20210226, end: 20210227
  7. CYCLOPHOSPHAMIDE FOR INJECTION, USP [Suspect]
     Active Substance: CYCLOPHOSPHAMIDE
     Indication: CHRONIC LYMPHOCYTIC LEUKAEMIA
     Dosage: DOSAGE FORM: INJECTION FOR INFUSION
     Route: 042
     Dates: start: 20210303, end: 20210305
  8. ALLOPURINOL. [Concomitant]
     Active Substance: ALLOPURINOL
     Indication: PROPHYLAXIS
     Dosage: DOSAGE FORM: TABLETS
     Route: 048
     Dates: start: 20210311, end: 20210312
  9. LEVEMIR [Concomitant]
     Active Substance: INSULIN DETEMIR
     Indication: BLOOD GLUCOSE FLUCTUATION
     Dosage: 100 UNITS/ML
     Route: 058
     Dates: start: 201112
  10. TRIAMCINOLONE [Concomitant]
     Active Substance: TRIAMCINOLONE
     Indication: ARTHROPOD BITE
     Dosage: 1 APPLICATION
     Route: 061
     Dates: start: 201907
  11. AZITHROMYCIN ANHYDROUS. [Concomitant]
     Active Substance: AZITHROMYCIN ANHYDROUS
     Indication: PNEUMONIA MYCOPLASMAL
     Route: 048
     Dates: start: 20210226, end: 20210301
  12. ALBUTEROL. [Concomitant]
     Active Substance: ALBUTEROL
     Indication: BRONCHITIS
     Dosage: ROUTE: INHALATION, 2.5 MG/3 ML, DOSAGE FORM: NEBULIZER
     Route: 050
     Dates: start: 20210215
  13. LISINOPRIL. [Concomitant]
     Active Substance: LISINOPRIL
     Indication: HYPERTENSION
     Dosage: DOSAGE FORM: TABLETS
     Route: 048
     Dates: start: 201112
  14. FENTANYL. [Concomitant]
     Active Substance: FENTANYL
     Indication: ANAESTHESIA
  15. FENTANYL. [Concomitant]
     Active Substance: FENTANYL
     Indication: SEDATION
     Dosage: PRN
     Route: 042
     Dates: start: 20210305, end: 20210305
  16. POTASSIUM CHLORIDE. [Concomitant]
     Active Substance: POTASSIUM CHLORIDE
     Indication: PRODUCT USED FOR UNKNOWN INDICATION
     Dosage: DOSAGE FORM: SUSTAINED?RELEASE TABLET
     Route: 048
     Dates: start: 20210219
  17. ACYCLOVIR. [Concomitant]
     Active Substance: ACYCLOVIR
     Indication: PROPHYLAXIS
     Dosage: DOSAGE FORM: TABLETS
     Route: 048
     Dates: start: 202007
  18. ACETAMINOPHEN. [Concomitant]
     Active Substance: ACETAMINOPHEN
     Indication: PREMEDICATION
     Route: 048
     Dates: start: 20210309, end: 20210309
  19. FUROSEMIDE. [Concomitant]
     Active Substance: FUROSEMIDE
     Indication: OEDEMA PERIPHERAL
     Dosage: DOSAGE FORM: TABLETS
     Route: 048
     Dates: start: 20210219
  20. ALLOPURINOL. [Concomitant]
     Active Substance: ALLOPURINOL
     Dosage: DOSAGE FORM: TABLETS
     Route: 048
     Dates: start: 20210322, end: 20210330
  21. NACL [Concomitant]
     Active Substance: SODIUM CHLORIDE
     Indication: TUMOUR LYSIS SYNDROME
     Dosage: PRN
     Route: 042
     Dates: start: 20210303, end: 20210305
  22. NACL [Concomitant]
     Active Substance: SODIUM CHLORIDE
     Indication: VASCULAR DEVICE OCCLUSION
     Route: 042
     Dates: start: 20210310
  23. ONDANSETRON [Concomitant]
     Active Substance: ONDANSETRON
     Indication: NAUSEA
     Route: 042
     Dates: start: 20210303, end: 20210305
  24. ACETAMINOPHEN. [Concomitant]
     Active Substance: ACETAMINOPHEN
     Indication: CYTOKINE RELEASE SYNDROME
     Route: 048
     Dates: start: 20210302, end: 20210302
  25. ACETAMINOPHEN. [Concomitant]
     Active Substance: ACETAMINOPHEN
     Route: 048
     Dates: start: 20210310, end: 20210310
  26. ENOXAPARIN [Concomitant]
     Active Substance: ENOXAPARIN
     Indication: PRODUCT USED FOR UNKNOWN INDICATION
     Route: 058
     Dates: start: 20210226, end: 20210305
  27. FLUDARABINE [Suspect]
     Active Substance: FLUDARABINE PHOSPHATE
     Indication: CHRONIC LYMPHOCYTIC LEUKAEMIA
     Dosage: DOSAGE FORM: INJECTION FOR INFUSION
     Route: 042
     Dates: start: 20210303, end: 20210305
  28. ALLOPURINOL. [Concomitant]
     Active Substance: ALLOPURINOL
     Indication: TUMOUR LYSIS SYNDROME
     Dosage: DOSAGE FORM: TABLETS
     Route: 048
     Dates: start: 20210219
  29. PHOSLO [Concomitant]
     Active Substance: CALCIUM ACETATE
     Indication: TUMOUR LYSIS SYNDROME
     Route: 065
     Dates: start: 20210202
  30. DIPHENHYDRAMINE. [Concomitant]
     Active Substance: DIPHENHYDRAMINE
     Route: 042
     Dates: start: 20210309, end: 20210309
  31. NACL [Concomitant]
     Active Substance: SODIUM CHLORIDE
     Indication: CHEMOTHERAPY SIDE EFFECT PROPHYLAXIS
     Dosage: PRN, 10 AND 30 ML/HR
     Route: 042
     Dates: start: 20210309
  32. NACL [Concomitant]
     Active Substance: SODIUM CHLORIDE
     Route: 065
     Dates: start: 20210327
  33. FUROSEMIDE. [Concomitant]
     Active Substance: FUROSEMIDE
     Indication: PERIPHERAL SWELLING
     Dosage: DOSAGE FORM: TABLETS
     Route: 042
     Dates: start: 20210301, end: 20210301
  34. PENTAMIDINE [Concomitant]
     Active Substance: PENTAMIDINE
     Indication: PNEUMOCYSTIS JIROVECII PNEUMONIA
     Route: 065
     Dates: start: 20210302, end: 20210302

REACTIONS (4)
  - Cytokine release syndrome [Recovered/Resolved]
  - Cytokine release syndrome [Recovered/Resolved]
  - Haemophagocytic lymphohistiocytosis [Recovered/Resolved]
  - Tumour lysis syndrome [Recovered/Resolved]

NARRATIVE: CASE EVENT DATE: 20210310
